FAERS Safety Report 9540652 (Version 1)
Quarter: 2013Q3

REPORT INFORMATION
  Report Type: Spontaneous
  Country: ES (occurrence: ES)
  Receive Date: 20130920
  Receipt Date: 20130920
  Transmission Date: 20140515
  Serious: Yes (Other)
  Sender: FDA-Public Use
  Company Number: ALCN2013ES004745

PATIENT
  Age: 81 Year
  Sex: Female

DRUGS (1)
  1. AZOPT [Suspect]
     Indication: GLAUCOMA
     Dosage: 1 GTT, QD
     Route: 047
     Dates: start: 20130827, end: 20130902

REACTIONS (3)
  - Hypertension [Recovering/Resolving]
  - Dyspnoea [Recovering/Resolving]
  - Irritability [Recovering/Resolving]
